FAERS Safety Report 20745541 (Version 1)
Quarter: 2022Q2

REPORT INFORMATION
  Report Type: Spontaneous
  Country: CN (occurrence: CN)
  Receive Date: 20220425
  Receipt Date: 20220425
  Transmission Date: 20220720
  Serious: Yes (Other)
  Sender: FDA-Public Use
  Company Number: CN-BAYER-2022A059544

PATIENT
  Age: 59 Year
  Sex: Female
  Weight: 58 kg

DRUGS (1)
  1. AVELOX [Suspect]
     Active Substance: MOXIFLOXACIN HYDROCHLORIDE
     Indication: Pneumonia
     Dosage: 0.4 G, TID
     Route: 048
     Dates: start: 20220325, end: 20220327

REACTIONS (5)
  - Hallucination, visual [Recovered/Resolved]
  - Myocardial injury [None]
  - Confusional state [Recovered/Resolved]
  - Inappropriate schedule of product administration [None]
  - Product prescribing issue [None]

NARRATIVE: CASE EVENT DATE: 20220325
